FAERS Safety Report 5818960-0 (Version None)
Quarter: 2008Q3

REPORT INFORMATION
  Report Type: 
  Country: None (occurrence: None)
  Receive Date: 20080723
  Receipt Date: 20080714
  Transmission Date: 20090109
  Serious: Yes (Other)
  Sender: FDA-Public Use
  Company Number: US-JNJFOC-20080703499

PATIENT
  Sex: Female
  Weight: 53.52 kg

DRUGS (8)
  1. REMICADE [Suspect]
     Route: 042
  2. REMICADE [Suspect]
     Indication: COLITIS ULCERATIVE
     Route: 042
  3. PURENTHAL [Concomitant]
  4. PRILOSEC [Concomitant]
  5. LIALDA [Concomitant]
  6. PREDNISONE TAB [Concomitant]
  7. DICYCLOMINE [Concomitant]
  8. HYDROCHLOROTHIAZIDE [Concomitant]

REACTIONS (1)
  - PEMPHIGOID [None]
